FAERS Safety Report 7074920-6 (Version None)
Quarter: 2010Q4

REPORT INFORMATION
  Report Type: 
  Country: None (occurrence: None)
  Receive Date: 20101029
  Receipt Date: 20101025
  Transmission Date: 20110411
  Serious: Yes (Congenital Anomaly, Other)
  Sender: FDA-Public Use
  Company Number: FR-MERCK-1010FRA00081B1

PATIENT
  Age: 0 Day

DRUGS (2)
  1. JANUVIA [Suspect]
     Indication: TYPE 1 DIABETES MELLITUS
     Route: 064
     Dates: end: 20091019
  2. METFORMIN HYDROCHLORIDE [Suspect]
     Indication: TYPE 1 DIABETES MELLITUS
     Route: 064
     Dates: end: 20091019

REACTIONS (1)
  - NEURAL TUBE DEFECT [None]
